FAERS Safety Report 8612395-3 (Version None)
Quarter: 2012Q3

REPORT INFORMATION
  Report Type: 
  Country: None (occurrence: None)
  Receive Date: 20120822
  Receipt Date: 20120817
  Transmission Date: 20120928
  Serious: Yes (Hospitalization)
  Sender: FDA-Public Use
  Company Number: FR-PFIZER INC-2012201658

PATIENT
  Age: 83 Year
  Sex: Female

DRUGS (11)
  1. LASIX [Suspect]
     Indication: HYPERTENSION
     Dosage: 40 MG, 1X/DAY
     Route: 048
  2. AMARYL [Concomitant]
  3. PREVISCAN [Concomitant]
  4. SMECTA ^DAE WOONG^ [Concomitant]
  5. METEOXANE [Concomitant]
  6. ATORVASTATIN [Suspect]
     Indication: HYPERCHOLESTEROLAEMIA
     Dosage: 10 MG, 1X/DAY
     Route: 048
  7. NEBIVOLOL HCL [Concomitant]
  8. METFORMIN HYDROCHLORIDE [Suspect]
     Indication: TYPE 2 DIABETES MELLITUS
     Dosage: 1 DF, 2X/DAY
     Route: 048
     Dates: start: 20120101, end: 20120723
  9. AMITRIPTYLINE HYDROCHLORIDE [Concomitant]
  10. CELLUVISC [Concomitant]
  11. IRBESARTAN AND HYDROCHLOROTHIAZIDE [Suspect]
     Indication: HYPERTENSION
     Dosage: 325 MG, 1X/DAY
     Route: 048

REACTIONS (4)
  - RENAL FAILURE ACUTE [None]
  - TOXICITY TO VARIOUS AGENTS [None]
  - PANCREATITIS [None]
  - CHOLESTASIS [None]
